FAERS Safety Report 17492787 (Version 8)
Quarter: 2022Q1

REPORT INFORMATION
  Report Type: Report from Study
  Country: AU (occurrence: AU)
  Receive Date: 20200303
  Receipt Date: 20220120
  Transmission Date: 20220423
  Serious: Yes (Other)
  Sender: FDA-Public Use
  Company Number: AU-SA-2018SA136370

PATIENT
  Age: 48 Year
  Sex: Male
  Weight: 60 kg

DRUGS (23)
  1. RAMIPRIL [Suspect]
     Active Substance: RAMIPRIL
     Dosage: UNK
     Route: 065
  2. AGALSIDASE BETA [Suspect]
     Active Substance: AGALSIDASE BETA
     Indication: Fabry^s disease
     Dosage: 1.03 MG/KG, QOW (60 MG, QOW, 60ML/HR FOR 2 HOURS)
     Route: 041
     Dates: start: 20080923
  3. AGALSIDASE BETA [Suspect]
     Active Substance: AGALSIDASE BETA
     Dosage: 1.03 MG/KG, QOW (60 MG, QOW, 60ML/HR FOR 2 HOURS)
     Route: 041
  4. AGALSIDASE BETA [Suspect]
     Active Substance: AGALSIDASE BETA
     Dosage: 1.03 MG/KG, QOW (60 MG, QOW, 60ML/HR FOR 2 HOURS)
     Route: 041
  5. AGALSIDASE BETA [Suspect]
     Active Substance: AGALSIDASE BETA
     Dosage: 1.03 MG/KG, QOW (60 MG, QOW, 60ML/HR FOR 2 HOURS)
     Route: 041
  6. AGALSIDASE BETA [Suspect]
     Active Substance: AGALSIDASE BETA
     Dosage: 1.03 MG/KG, QOW (60 MG, QOW, 60ML/HR FOR 2 HOURS)
     Route: 041
  7. AGALSIDASE BETA [Suspect]
     Active Substance: AGALSIDASE BETA
     Dosage: 1.03 MG/KG, QOW (60 MG, QOW, 60ML/HR FOR 2 HOURS)
     Route: 041
  8. AGALSIDASE BETA [Suspect]
     Active Substance: AGALSIDASE BETA
     Dosage: 60 MG, QOW, (INFUSION IN HOME SETTING)
     Route: 041
  9. AGALSIDASE BETA [Suspect]
     Active Substance: AGALSIDASE BETA
     Dosage: 60 MG, QOW, (INFUSION IN HOME SETTING)
     Route: 041
  10. AGALSIDASE BETA [Suspect]
     Active Substance: AGALSIDASE BETA
     Dosage: 60 MG, QOW, (INFUSION IN HOME SETTING)
     Route: 041
  11. AGALSIDASE BETA [Suspect]
     Active Substance: AGALSIDASE BETA
     Dosage: 60 MG, QOW, (INFUSION IN HOME SETTING)
     Route: 041
  12. AGALSIDASE BETA [Suspect]
     Active Substance: AGALSIDASE BETA
     Dosage: 60 MG, QOW, (INFUSION IN HOME SETTING)
     Route: 041
  13. AGALSIDASE BETA [Suspect]
     Active Substance: AGALSIDASE BETA
     Dosage: 60 MG, QOW, (INFUSION IN HOME SETTING)
     Route: 041
     Dates: start: 20180424
  14. AGALSIDASE BETA [Suspect]
     Active Substance: AGALSIDASE BETA
     Dosage: 60 MG, QOW, (INFUSION IN HOME SETTING)
     Route: 041
  15. AGALSIDASE BETA [Suspect]
     Active Substance: AGALSIDASE BETA
     Dosage: 60 MG, QOW, (INFUSION IN HOME SETTING)
     Route: 041
  16. AGALSIDASE BETA [Suspect]
     Active Substance: AGALSIDASE BETA
     Dosage: 60 MG, QOW, (INFUSION IN HOME SETTING)
     Route: 041
  17. AGALSIDASE BETA [Suspect]
     Active Substance: AGALSIDASE BETA
     Dosage: 60 MG, QOW, (INFUSION IN HOME SETTING)
     Route: 041
  18. AGALSIDASE BETA [Suspect]
     Active Substance: AGALSIDASE BETA
     Dosage: 60 MG, QOW, (INFUSION IN HOME SETTING)
     Route: 041
  19. AGALSIDASE BETA [Suspect]
     Active Substance: AGALSIDASE BETA
     Dosage: 60 MG, QOW, (INFUSION IN HOME SETTING)
  20. AGALSIDASE BETA [Suspect]
     Active Substance: AGALSIDASE BETA
     Dosage: 60 MG, QOW, (INFUSION IN HOME SETTING)
  21. AGALSIDASE BETA [Suspect]
     Active Substance: AGALSIDASE BETA
     Dosage: 60 MG, QOW, (INFUSION IN HOME SETTING)
  22. AGALSIDASE BETA [Suspect]
     Active Substance: AGALSIDASE BETA
     Dosage: 60 MG, QOW, (INFUSION IN HOME SETTING)
  23. CANDESARTAN [Concomitant]
     Active Substance: CANDESARTAN
     Dosage: UNK
     Route: 065
     Dates: start: 20190119

REACTIONS (20)
  - Heart rate decreased [Not Recovered/Not Resolved]
  - Bradycardia [Unknown]
  - Bradycardia [Unknown]
  - Oropharyngeal pain [Recovered/Resolved]
  - Peripheral swelling [Not Recovered/Not Resolved]
  - Swelling face [Recovering/Resolving]
  - Feeling abnormal [Not Recovered/Not Resolved]
  - Cough [Unknown]
  - Influenza [Recovered/Resolved]
  - Joint swelling [Recovering/Resolving]
  - Nerve compression [Not Recovered/Not Resolved]
  - Pain in extremity [Not Recovered/Not Resolved]
  - Respiratory tract irritation [Unknown]
  - Malaise [Not Recovered/Not Resolved]
  - Pain [Recovering/Resolving]
  - Influenza like illness [Recovered/Resolved]
  - Lethargy [Recovered/Resolved]
  - Underdose [Unknown]
  - Malaise [Recovered/Resolved]
  - Pyrexia [Recovered/Resolved]

NARRATIVE: CASE EVENT DATE: 20170501
